FAERS Safety Report 16028766 (Version 1)
Quarter: 2019Q2

REPORT INFORMATION
  Report Type: Spontaneous
  Country: US (occurrence: US)
  Receive Date: 20190301
  Receipt Date: 20190301
  Transmission Date: 20190711
  Serious: Yes (Other)
  Sender: FDA-Public Use
  Company Number: None

PATIENT
  Age: 37 Year
  Sex: Female
  Weight: 94.5 kg

DRUGS (2)
  1. SEROQUEL [Suspect]
     Active Substance: QUETIAPINE FUMARATE
     Indication: ANXIETY
     Dosage: ?          QUANTITY:2 TABLET(S);?
     Route: 048
     Dates: start: 20190226, end: 20190228
  2. SEROQUEL [Suspect]
     Active Substance: QUETIAPINE FUMARATE
     Indication: DEPRESSION
     Dosage: ?          QUANTITY:2 TABLET(S);?
     Route: 048
     Dates: start: 20190226, end: 20190228

REACTIONS (10)
  - Presyncope [None]
  - Hyperhidrosis [None]
  - Feeling hot [None]
  - Restlessness [None]
  - Product substitution issue [None]
  - Drug ineffective [None]
  - Dysphemia [None]
  - Tremor [None]
  - Aphasia [None]
  - Crying [None]

NARRATIVE: CASE EVENT DATE: 20190228
